FAERS Safety Report 16420474 (Version 10)
Quarter: 2021Q2

REPORT INFORMATION
  Report Type: Spontaneous
  Country: US (occurrence: US)
  Receive Date: 20190612
  Receipt Date: 20210514
  Transmission Date: 20210716
  Serious: Yes (Other)
  Sender: FDA-Public Use
  Company Number: US-PFIZER INC-2019243105

PATIENT
  Age: 28 Year
  Sex: Female
  Weight: 51.97 kg

DRUGS (9)
  1. DILANTIN [Suspect]
     Active Substance: PHENYTOIN
     Indication: SEIZURE
     Dosage: 100 MG, THREE TIMES A DAY
     Dates: start: 1966
  2. DILANTIN [Suspect]
     Active Substance: PHENYTOIN
     Dosage: 100 MG, TWICE A DAY(1 CAPSULE BY MOUTH TWICE A DAY)
     Route: 048
  3. DILANTIN [Suspect]
     Active Substance: PHENYTOIN
     Dosage: 260 MG, DAILY (30 MG AND 100 MG, TWO OF EACH A DAY)
  4. PHENOBARBITAL. [Suspect]
     Active Substance: PHENOBARBITAL
     Indication: EPILEPSY
     Dosage: 97.2 MG, 1X/DAY
     Dates: start: 1966
  5. DILANTIN [Suspect]
     Active Substance: PHENYTOIN
     Dosage: UNK (STRENGTH: 30 MG, QUANTITY FOR 90 DAYS: 180)
  6. DILANTIN [Suspect]
     Active Substance: PHENYTOIN
     Indication: EPILEPSY
     Dosage: 300 MG, ONCE A DAY
  7. DILANTIN [Suspect]
     Active Substance: PHENYTOIN
     Dosage: 130 MG, 2X/DAY (TWO EACH OF THE 100 MG AND TWO OF THE 30 MG)
     Route: 048
  8. DILANTIN [Suspect]
     Active Substance: PHENYTOIN
     Dosage: 130 MG, 2X/DAY (TWO EACH OF THE 100 MG AND TWO OF THE 30 MG)
     Route: 048
  9. DILANTIN [Suspect]
     Active Substance: PHENYTOIN
     Dosage: 30 MG, 2X/DAY
     Route: 048

REACTIONS (3)
  - Seizure [Recovered/Resolved]
  - Pyrexia [Recovered/Resolved]
  - Influenza [Recovered/Resolved]

NARRATIVE: CASE EVENT DATE: 1989
